FAERS Safety Report 4279425-3 (Version None)
Quarter: 2004Q1

REPORT INFORMATION
  Report Type: 
  Country: None (occurrence: None)
  Receive Date: 20040127
  Receipt Date: 20030929
  Transmission Date: 20041129
  Serious: Yes (Death)
  Sender: FDA-Public Use
  Company Number: GB-BRISTOL-MYERS SQUIBB COMPANY-12395794

PATIENT
  Age: 67 Year
  Sex: Female

DRUGS (3)
  1. PACLITAXEL [Suspect]
     Indication: CARCINOMA
     Dosage: TOTAL DOSING: 999 MG (84 DAYS)
     Dates: start: 20030918, end: 20030918
  2. CARBOPLATIN [Suspect]
     Indication: CARCINOMA
     Dosage: TOTAL DOSING: 1200 MG (84 DAYS)
     Dates: start: 20030918, end: 20030918
  3. GEMCITABINE [Suspect]
     Indication: CARCINOMA
     Dosage: TOTAL DOSING: 7600 MG (84 DAYS)
     Dates: start: 20030918, end: 20030918

REACTIONS (1)
  - MYOCARDIAL INFARCTION [None]
